FAERS Safety Report 24062007 (Version 2)
Quarter: 2024Q3

REPORT INFORMATION
  Report Type: Spontaneous
  Country: US (occurrence: US)
  Receive Date: 20240708
  Receipt Date: 20240709
  Transmission Date: 20241016
  Serious: Yes (Other)
  Sender: PFIZER
  Company Number: US-PFIZER INC-PV202400087401

PATIENT
  Age: 62 Year
  Sex: Male

DRUGS (4)
  1. METHOTREXATE SODIUM [Suspect]
     Active Substance: METHOTREXATE SODIUM
     Indication: Primary effusion lymphoma
     Dosage: CYCLIC, HIGH-DOSE-MTX (FIRST CYCLE)
     Route: 042
  2. METHOTREXATE SODIUM [Suspect]
     Active Substance: METHOTREXATE SODIUM
     Dosage: CYCLIC, HIGH-DOSE-MTX (SECOND CYCLE)
     Route: 042
  3. DEXAMETHASONE [Suspect]
     Active Substance: DEXAMETHASONE
     Indication: Primary effusion lymphoma
     Dosage: UNK, DAILY (FIRST CYCLE)
  4. DEXAMETHASONE [Suspect]
     Active Substance: DEXAMETHASONE
     Dosage: UNK, DAILY (SECOND CYCLE)

REACTIONS (3)
  - Hypoxia [Unknown]
  - Delirium [Unknown]
  - Mania [Unknown]
